FAERS Safety Report 8410048-8 (Version None)
Quarter: 2012Q2

REPORT INFORMATION
  Report Type: 
  Country: None (occurrence: None)
  Receive Date: 20120605
  Receipt Date: 20120530
  Transmission Date: 20120825
  Serious: Yes (Life-Threatening, Hospitalization)
  Sender: FDA-Public Use
  Company Number: US-BAYER-2012-014754

PATIENT
  Age: 17 Year
  Sex: Female
  Weight: 77.098 kg

DRUGS (12)
  1. AMOXICILLIN [Concomitant]
     Dosage: UNK
     Route: 048
     Dates: start: 20020101, end: 20110101
  2. PAIN MEDICATION [Concomitant]
  3. CILOXAN [Concomitant]
     Dosage: UNK
     Route: 048
     Dates: start: 20020101, end: 20110101
  4. YASMIN [Suspect]
     Indication: CONTRACEPTION
     Dosage: UNK
     Dates: start: 20080923, end: 20081223
  5. CLARITHROMYCIN [Concomitant]
     Dosage: UNK
     Route: 048
     Dates: start: 20020101, end: 20110101
  6. PENICILLIN [Concomitant]
     Dosage: UNK
     Route: 048
     Dates: start: 20020101, end: 20110101
  7. ZITHROMAX [Concomitant]
     Dosage: UNK
     Route: 048
     Dates: start: 20020101, end: 20110101
  8. NEXIUM [Concomitant]
     Indication: DYSPEPSIA
     Dosage: UNK
     Route: 048
     Dates: start: 20090101
  9. AMOXIL [Concomitant]
     Dosage: UNK
     Route: 048
     Dates: start: 20020101, end: 20110101
  10. AMOXICILLIN AND CLAVULANATE POTASSIUM [Concomitant]
     Dosage: UNK
     Route: 048
     Dates: start: 20020101, end: 20110101
  11. DROSPIRENONE AND ETHINYL ESTRADIOL [Suspect]
     Indication: CONTRACEPTION
     Dosage: UNK
     Dates: start: 20080923, end: 20081223
  12. ANTIBIOTICS [Concomitant]

REACTIONS (7)
  - ABDOMINAL PAIN [None]
  - PAIN [None]
  - CHOLECYSTITIS ACUTE [None]
  - GASTROOESOPHAGEAL REFLUX DISEASE [None]
  - ANHEDONIA [None]
  - ANXIETY [None]
  - GALLBLADDER DISORDER [None]
